FAERS Safety Report 10658730 (Version 4)
Quarter: 2015Q2

REPORT INFORMATION
  Report Type: Spontaneous
  Country: US (occurrence: US)
  Receive Date: 20141217
  Receipt Date: 20150402
  Transmission Date: 20150821
  Serious: No
  Sender: FDA-Public Use
  Company Number: US-GLAXOSMITHKLINE-A1071303A

PATIENT
  Age: 56 Year
  Sex: Female

DRUGS (3)
  1. VOTRIENT [Suspect]
     Active Substance: PAZOPANIB HYDROCHLORIDE
     Indication: RENAL CANCER
     Dosage: 200 MG TABLETS, UNKNOWN DOSING
     Route: 065
     Dates: start: 20140401
  2. VOTRIENT [Suspect]
     Active Substance: PAZOPANIB HYDROCHLORIDE
     Dosage: 200 MG, U
     Dates: start: 20140401, end: 20150323
  3. VOTRIENT [Suspect]
     Active Substance: PAZOPANIB HYDROCHLORIDE
     Dosage: UNK
     Dates: start: 20140401

REACTIONS (12)
  - Temperature intolerance [Unknown]
  - Arthralgia [Unknown]
  - Abdominal pain upper [Unknown]
  - Constipation [Unknown]
  - Pain in extremity [Unknown]
  - Blood pressure increased [Recovered/Resolved]
  - Dry mouth [Unknown]
  - Drug ineffective [Recovered/Resolved]
  - Alopecia [Unknown]
  - Musculoskeletal pain [Unknown]
  - Diarrhoea [Not Recovered/Not Resolved]
  - Periarthritis [Unknown]

NARRATIVE: CASE EVENT DATE: 20140521
